FAERS Safety Report 5822445-5 (Version None)
Quarter: 2008Q3

REPORT INFORMATION
  Report Type: 
  Country: None (occurrence: None)
  Receive Date: 20080725
  Receipt Date: 20080305
  Transmission Date: 20090109
  Serious: No
  Sender: FDA-Public Use
  Company Number: US-AMGEN-US263532

PATIENT
  Age: 51 Year
  Sex: Male

DRUGS (7)
  1. PROCRIT [Suspect]
     Indication: ANAEMIA
     Route: 065
     Dates: start: 20080101, end: 20080129
  2. FLUOXETINE [Concomitant]
  3. LEVITRA [Concomitant]
  4. OMEPRAZOLE [Concomitant]
  5. ABILIFY [Concomitant]
  6. RIBAVIRIN [Concomitant]
     Dates: start: 20071201, end: 20071201
  7. INTERFERON [Concomitant]
     Dates: start: 20071201, end: 20071201

REACTIONS (1)
  - ANAEMIA [None]
